FAERS Safety Report 11156037 (Version 1)
Quarter: 2015Q2

REPORT INFORMATION
  Report Type: Spontaneous
  Country: US (occurrence: None)
  Receive Date: 20150529
  Receipt Date: 20150529
  Transmission Date: 20150821
  Serious: Yes (Other)
  Sender: FDA-Public Use
  Company Number: None

PATIENT
  Age: 39 Year
  Sex: Male
  Weight: 94.8 kg

DRUGS (5)
  1. ISONIAZID. [Suspect]
     Active Substance: ISONIAZID
     Indication: CHEST X-RAY ABNORMAL
     Dosage: 3 TABS  WEEK ORAL
     Route: 048
     Dates: start: 20150521, end: 20150521
  2. ISONIAZID. [Suspect]
     Active Substance: ISONIAZID
     Indication: TUBERCULIN TEST POSITIVE
     Dosage: 3 TABS  WEEK ORAL
     Route: 048
     Dates: start: 20150521, end: 20150521
  3. PRIFTIN [Suspect]
     Active Substance: RIFAPENTINE
     Indication: CHEST X-RAY ABNORMAL
     Dosage: 6 TABS WEEK ORAL
     Route: 048
     Dates: start: 20150521, end: 20150521
  4. VITAMIN B6 [Concomitant]
     Active Substance: PYRIDOXINE HYDROCHLORIDE
  5. PRIFTIN [Suspect]
     Active Substance: RIFAPENTINE
     Indication: LATENT TUBERCULOSIS
     Dosage: 6 TABS WEEK ORAL
     Route: 048
     Dates: start: 20150521, end: 20150521

REACTIONS (4)
  - Pyrexia [None]
  - Abdominal pain lower [None]
  - Chromaturia [None]
  - Hepatic enzyme increased [None]

NARRATIVE: CASE EVENT DATE: 20150521
